FAERS Safety Report 7656421-7 (Version None)
Quarter: 2011Q3

REPORT INFORMATION
  Report Type: 
  Country: None (occurrence: None)
  Receive Date: 20110804
  Receipt Date: 20110725
  Transmission Date: 20111222
  Serious: Yes (Hospitalization)
  Sender: FDA-Public Use
  Company Number: IN-GLAXOSMITHKLINE-B0736278A

PATIENT
  Age: 20 Year
  Sex: Female

DRUGS (3)
  1. LAMOTRIGINE [Suspect]
     Indication: EPILEPSY
     Dosage: 200MG PER DAY
     Route: 065
  2. VALPROIC ACID [Concomitant]
     Indication: EPILEPSY
     Route: 065
  3. CARBAMAZEPINE [Concomitant]
     Route: 065

REACTIONS (12)
  - RASH VESICULAR [None]
  - SKIN DISORDER [None]
  - ILL-DEFINED DISORDER [None]
  - NIKOLSKY'S SIGN [None]
  - BLISTER [None]
  - CONJUNCTIVAL OEDEMA [None]
  - PAIN OF SKIN [None]
  - SKIN NECROSIS [None]
  - LIP OEDEMA [None]
  - ABDOMINAL PAIN [None]
  - TOXIC EPIDERMAL NECROLYSIS [None]
  - MOUTH ULCERATION [None]
